FAERS Safety Report 9663527 (Version 2)
Quarter: 2013Q4

REPORT INFORMATION
  Report Type: Spontaneous
  Country: US (occurrence: US)
  Receive Date: 20131101
  Receipt Date: 20131106
  Transmission Date: 20140711
  Serious: No
  Sender: FDA-Public Use
  Company Number: US-PFIZER INC-2013310633

PATIENT
  Sex: Female

DRUGS (1)
  1. GEODON [Suspect]
     Dosage: 80 MG, 2X/DAY (BID)

REACTIONS (7)
  - Sedation [Unknown]
  - Dizziness [Unknown]
  - Somnolence [Unknown]
  - Muscle rigidity [Unknown]
  - Poor quality sleep [Unknown]
  - Hyperhidrosis [Unknown]
  - Agitation [Unknown]
